FAERS Safety Report 4579288-2 (Version None)
Quarter: 2005Q1

REPORT INFORMATION
  Report Type: 
  Country: None (occurrence: None)
  Receive Date: 20050209
  Receipt Date: 20050201
  Transmission Date: 20050727
  Serious: Yes (Hospitalization)
  Sender: FDA-Public Use
  Company Number: 2005SE00633

PATIENT
  Age: 84 Year
  Sex: Female
  Weight: 48 kg

DRUGS (6)
  1. BLOPRESS [Suspect]
     Indication: HYPERTENSION
     Dosage: 6 MG BID PO
     Route: 048
     Dates: start: 20001230, end: 20031119
  2. SALIPEX LA [Concomitant]
  3. CARDENALIN [Concomitant]
  4. PHENLASE-S [Concomitant]
  5. GASMOTIN [Concomitant]
  6. STOGAR [Concomitant]

REACTIONS (2)
  - ANAEMIA [None]
  - NEPHROTIC SYNDROME [None]
